FAERS Safety Report 23673715 (Version 1)
Quarter: 2024Q1

REPORT INFORMATION
  Report Type: Spontaneous
  Country: US (occurrence: US)
  Receive Date: 20240326
  Receipt Date: 20240326
  Transmission Date: 20240410
  Serious: No
  Sender: FDA-Public Use
  Company Number: US-GSKCCFUS-Case-01963257_AE-109151

PATIENT
  Sex: Female

DRUGS (1)
  1. TRELEGY ELLIPTA [Suspect]
     Active Substance: FLUTICASONE FUROATE\UMECLIDINIUM BROMIDE\VILANTEROL TRIFENATATE
     Indication: Cough
     Dosage: UNK, 100/62.5/25 MCG
     Route: 055

REACTIONS (4)
  - Product dose omission in error [Unknown]
  - Product confusion [Unknown]
  - Product use in unapproved indication [Unknown]
  - Product prescribing issue [Unknown]
